FAERS Safety Report 11852237 (Version 2)
Quarter: 2016Q1

REPORT INFORMATION
  Report Type: Spontaneous
  Country: US (occurrence: US)
  Receive Date: 20151218
  Receipt Date: 20160111
  Transmission Date: 20160526
  Serious: Yes (Hospitalization)
  Sender: FDA-Public Use
  Company Number: US-LPDUSPRD-20151007

PATIENT
  Age: 39 Year
  Sex: Female

DRUGS (3)
  1. ANTIBIOTICS, UNSPECIFIED [Concomitant]
     Dosage: DOSE NOT PROVIDED
     Route: 048
  2. DEXAMETHASONE SODIUM PHOSPHATE INJECTION, USP (4901-25) [Suspect]
     Active Substance: DEXAMETHASONE SODIUM PHOSPHATE
     Dosage: 10 MG
     Route: 065
  3. METOPROLOL INJECTION, USP (1355-10) [Suspect]
     Active Substance: METOPROLOL
     Dosage: DOSE NOT PROVIDED
     Route: 065

REACTIONS (3)
  - Phaeochromocytoma crisis [Recovered/Resolved]
  - Pulmonary oedema [Recovered/Resolved]
  - Cardiogenic shock [Recovered/Resolved]
